FAERS Safety Report 25981561 (Version 1)
Quarter: 2025Q4

REPORT INFORMATION
  Report Type: Spontaneous
  Country: AU (occurrence: AU)
  Receive Date: 20251030
  Receipt Date: 20251030
  Transmission Date: 20260118
  Serious: Yes (Death, Hospitalization, Other)
  Sender: AMGEN
  Company Number: AU-AMGEN-AUSSP2025211340

PATIENT

DRUGS (12)
  1. FILGRASTIM [Suspect]
     Active Substance: FILGRASTIM
     Indication: Prophylaxis
     Dosage: UNK
     Route: 065
  2. FLUDARABINE [Concomitant]
     Active Substance: FLUDARABINE PHOSPHATE
     Dosage: UNK
     Route: 065
  3. CYTARABINE [Concomitant]
     Active Substance: CYTARABINE
     Dosage: 1.53 GRAM PER SQUARE METRE, Q12H ( D 1, 3 AND 5 OR D 1-3)
  4. IDARUBICIN [Concomitant]
     Active Substance: IDARUBICIN
  5. ETOPOSIDE [Concomitant]
     Active Substance: ETOPOSIDE
     Dosage: UNK
     Route: 065
  6. MIDOSTAURIN [Concomitant]
     Active Substance: MIDOSTAURIN
     Dosage: UNK
  7. GEMTUZUMAB OZOGAMICIN [Concomitant]
     Active Substance: GEMTUZUMAB OZOGAMICIN
     Dosage: UNK
  8. GILTERITINIB [Concomitant]
     Active Substance: GILTERITINIB
     Dosage: UNK
  9. IVOSIDENIB [Concomitant]
     Active Substance: IVOSIDENIB
     Dosage: UNK PLACEBO
  10. ENASIDENIB [Concomitant]
     Active Substance: ENASIDENIB
     Dosage: UNK PLACEBO
  11. IMATINIB [Concomitant]
     Active Substance: IMATINIB
  12. QUIZARTINIB [Concomitant]
     Active Substance: QUIZARTINIB

REACTIONS (5)
  - Death [Fatal]
  - Intensive care [Unknown]
  - Unevaluable event [Unknown]
  - Acute myeloid leukaemia recurrent [Unknown]
  - Infection [Unknown]
